FAERS Safety Report 7314013-3 (Version None)
Quarter: 2011Q1

REPORT INFORMATION
  Report Type: 
  Country: None (occurrence: None)
  Receive Date: 20110225
  Receipt Date: 20110222
  Transmission Date: 20110831
  Serious: Yes (Death)
  Sender: FDA-Public Use
  Company Number: PHHY2011CA14149

PATIENT
  Sex: Female

DRUGS (6)
  1. HYDROMORPHONE [Concomitant]
     Dosage: 1 MG, UNK
  2. SENOKOT [Concomitant]
  3. LACTULON [Concomitant]
  4. ACLASTA [Suspect]
     Indication: OSTEOPOROSIS
     Dosage: 5 MG, UNK
     Route: 042
     Dates: start: 20100520
  5. PREVACID [Concomitant]
     Dosage: 30 MG, QD
  6. MULTIVITAMIN [Concomitant]

REACTIONS (1)
  - CARDIAC ARREST [None]
